FAERS Safety Report 21207631 (Version 1)
Quarter: 2022Q3

REPORT INFORMATION
  Report Type: Spontaneous
  Country: US (occurrence: US)
  Receive Date: 20220812
  Receipt Date: 20220812
  Transmission Date: 20221027
  Serious: No
  Sender: FDA-Public Use
  Company Number: US-SANOFI-01222273

PATIENT
  Age: 81 Year
  Sex: Female

DRUGS (4)
  1. LANTUS SOLOSTAR [Suspect]
     Active Substance: INSULIN GLARGINE
     Indication: Type 2 diabetes mellitus
     Dosage: 10 UNITS QD
  2. LANTUS SOLOSTAR [Suspect]
     Active Substance: INSULIN GLARGINE
     Dosage: 12 UNITS QD
  3. LANTUS SOLOSTAR [Suspect]
     Active Substance: INSULIN GLARGINE
     Dosage: 10 UNITS QD
  4. TRULICITY [Concomitant]
     Active Substance: DULAGLUTIDE
     Dosage: UNK

REACTIONS (2)
  - Blood glucose increased [Unknown]
  - Product storage error [Unknown]
